FAERS Safety Report 16649977 (Version 2)
Quarter: 2019Q3

REPORT INFORMATION
  Report Type: Other
  Country: DE (occurrence: DE)
  Receive Date: 20190731
  Receipt Date: 20190818
  Transmission Date: 20191004
  Serious: Yes (Life-Threatening, Other)
  Sender: FDA-Public Use
  Company Number: DE-DEXPHARM-20190586

PATIENT
  Age: 81 Year
  Sex: Male
  Weight: 62 kg

DRUGS (13)
  1. HYDROCHLOROTHIAZIDE. [Suspect]
     Active Substance: HYDROCHLOROTHIAZIDE
     Dosage: 2 X 25 MG
  2. AMITRIPTYLINE [Suspect]
     Active Substance: AMITRIPTYLINE
  3. FLURAZEPAM [Suspect]
     Active Substance: FLURAZEPAM HYDROCHLORIDE
  4. ASPIRIN. [Suspect]
     Active Substance: ASPIRIN
     Indication: PAIN
     Dosage: 2 TIMES 500 MG
  5. LEVODOPA [Suspect]
     Active Substance: LEVODOPA
     Dosage: 2 X 100 MG
  6. THIORIDAZINE [Suspect]
     Active Substance: THIORIDAZINE
     Dosage: 3 X 25 MG
  7. DICLOFENAC [Suspect]
     Active Substance: DICLOFENAC
     Indication: PAIN
     Dosage: 1 TIMES 100 MG
  8. METHYLDOPA. [Suspect]
     Active Substance: METHYLDOPA
     Dosage: 3 X 250 MG
  9. LOPERAMIDE [Suspect]
     Active Substance: LOPERAMIDE
     Dosage: 3 X 2 MG
  10. DIGOXIN. [Suspect]
     Active Substance: DIGOXIN
  11. MAGALDRATE [Suspect]
     Active Substance: MAGALDRATE
     Dosage: 3 X 1 BTL
  12. IBUPROFEN. [Suspect]
     Active Substance: IBUPROFEN
     Indication: PAIN
     Dosage: 2 TIMES 200MG
  13. PHENPROCOUMON [Suspect]
     Active Substance: PHENPROCOUMON
     Dosage: AS PER INR

REACTIONS (2)
  - Drug interaction [Unknown]
  - Haemorrhage intracranial [Unknown]
